FAERS Safety Report 5022046-5 (Version None)
Quarter: 2006Q2

REPORT INFORMATION
  Report Type: 
  Country: None (occurrence: None)
  Receive Date: 20060501
  Receipt Date: 20050708
  Transmission Date: 20061013
  Serious: Yes (Hospitalization)
  Sender: FDA-Public Use
  Company Number: TEST00205002220

PATIENT
  Age: 77 Year
  Sex: Male
  Weight: 82.7 kg

DRUGS (12)
  1. ANDROGEL [Suspect]
     Indication: HYPOGONADISM
     Dosage: 5 GRAM(S) QD TRANSCUTANEOUS DAILY DOSE - SEE IMAGE
     Dates: start: 20040114, end: 20040830
  2. TERAZOSIN (TERAZOSIN) [Concomitant]
  3. LIPITOR [Concomitant]
  4. MULTIVITAMIN [Concomitant]
  5. VITAMIN C (VITAMIN C) [Concomitant]
  6. VITAMIN E [Concomitant]
  7. VITAMIN D [Concomitant]
  8. FOLIC ACID [Concomitant]
  9. ASPIRIN [Concomitant]
  10. CALCIUM CITRATE (CALCIUM CITRATE) [Concomitant]
  11. FISH OIL (FISH OIL) [Concomitant]
  12. GLUCOSAMINE W/CHONDROITIN SULFATES [Concomitant]

REACTIONS (2)
  - PROSTATE CANCER [None]
  - PROSTATIC SPECIFIC ANTIGEN INCREASED [None]
